FAERS Safety Report 18746847 (Version 1)
Quarter: 2021Q1

REPORT INFORMATION
  Report Type: Spontaneous
  Country: US (occurrence: US)
  Receive Date: 20210115
  Receipt Date: 20210115
  Transmission Date: 20210419
  Serious: No
  Sender: FDA-Public Use
  Company Number: US-GENERICUS, INC.-2020GNR00019

PATIENT
  Sex: Male

DRUGS (1)
  1. TOBRAMYCIN. [Suspect]
     Active Substance: TOBRAMYCIN
     Indication: CYSTIC FIBROSIS
     Dosage: 300 MG VIAL, 2X/DAY FOR 28 DAYS ON AND 28 DAYS OFF
     Dates: start: 20190503

REACTIONS (1)
  - Cough [Unknown]
